FAERS Safety Report 24150096 (Version 1)
Quarter: 2024Q3

REPORT INFORMATION
  Report Type: Spontaneous
  Country: NL (occurrence: NL)
  Receive Date: 20240730
  Receipt Date: 20240730
  Transmission Date: 20241016
  Serious: Yes (Other)
  Sender: TEVA
  Company Number: None

PATIENT
  Age: 6 Year
  Sex: Female
  Weight: 16 kg

DRUGS (1)
  1. ALBUTEROL [Suspect]
     Active Substance: ALBUTEROL
     Indication: Product used for unknown indication
     Dosage: SALBUTAMOL AEROSOL 100UG/DO / BRAND NAME NOT SPECIFIED
     Route: 065
     Dates: start: 20240701

REACTIONS (8)
  - Dyspnoea [Recovering/Resolving]
  - Tongue erythema [Recovering/Resolving]
  - Vomiting [Recovering/Resolving]
  - Cough [Recovering/Resolving]
  - Product substitution issue [Unknown]
  - Rash [Recovering/Resolving]
  - Headache [Recovering/Resolving]
  - Anxiety [Recovering/Resolving]
